FAERS Safety Report 8532675-X (Version None)
Quarter: 2012Q3

REPORT INFORMATION
  Report Type: 
  Country: None (occurrence: None)
  Receive Date: 20120711
  Receipt Date: 20111027
  Transmission Date: 20120928
  Serious: Yes (Life-Threatening)
  Sender: FDA-Public Use
  Company Number: 2011AA001217

PATIENT
  Age: 52 Year
  Sex: Female
  Weight: 74.5 kg

DRUGS (3)
  1. PHARMALGEN (801) HONEY BEE VENOM (100 UG/ML) [Suspect]
     Dosage: 100 MICROGRAMS; SUBCUTANEOUS
     Route: 058
  2. CLARITIN [Concomitant]
  3. PHARMALGEN (810) MIXED VESPID VENOM PROTEIN (300 UG/ML) [Suspect]
     Dosage: 210 MICROGRAMS; SUBCUTANEOUS
     Route: 058
     Dates: start: 20100201

REACTIONS (8)
  - COLD SWEAT [None]
  - HYPERSENSITIVITY [None]
  - DIZZINESS [None]
  - NAUSEA [None]
  - HYPOTENSION [None]
  - HEART RATE INCREASED [None]
  - INJECTION SITE PALLOR [None]
  - PARAESTHESIA [None]
